FAERS Safety Report 17439247 (Version 1)
Quarter: 2020Q1

REPORT INFORMATION
  Report Type: Spontaneous
  Country: US (occurrence: US)
  Receive Date: 20200219
  Receipt Date: 20200219
  Transmission Date: 20200409
  Serious: No
  Sender: FDA-Public Use
  Company Number: None

PATIENT
  Age: 76 Year
  Sex: Male

DRUGS (1)
  1. DORZOLAMIDE-TIMOLOL [Suspect]
     Active Substance: DORZOLAMIDE\TIMOLOL
     Route: 047
     Dates: start: 20200218, end: 20200218

REACTIONS (4)
  - Erythema [None]
  - Eye irritation [None]
  - Burning sensation [None]
  - Eye discharge [None]

NARRATIVE: CASE EVENT DATE: 20200218
